FAERS Safety Report 15308880 (Version 3)
Quarter: 2018Q3

REPORT INFORMATION
  Report Type: Report from Study
  Country: None (occurrence: SE)
  Receive Date: 20180823
  Receipt Date: 20180906
  Transmission Date: 20181010
  Serious: Yes (Hospitalization)
  Sender: FDA-Public Use
  Company Number: SE-ABBVIE-18S-150-2456291-00

PATIENT
  Age: 69 Year
  Sex: Female
  Weight: 33 kg

DRUGS (10)
  1. DUODOPA [Suspect]
     Active Substance: CARBIDOPA\LEVODOPA
     Indication: PARKINSON^S DISEASE
     Dosage: MD: 7.5 ML CD: 2.6 ML/H ED: 1 ML
     Route: 050
     Dates: start: 20180529, end: 2018
  2. LEVOCAR [Concomitant]
     Indication: PRODUCT USED FOR UNKNOWN INDICATION
  3. HALDOL [Suspect]
     Active Substance: HALOPERIDOL
     Indication: PRODUCT USED FOR UNKNOWN INDICATION
     Route: 065
  4. ELIQUIS [Concomitant]
     Active Substance: APIXABAN
     Indication: PRODUCT USED FOR UNKNOWN INDICATION
  5. DUODOPA [Suspect]
     Active Substance: CARBIDOPA\LEVODOPA
     Dosage: MD: 7.7 ML, CD: 2.6 ML/H ED: 1 ML
     Route: 050
     Dates: start: 201808
  6. MADOPARK QUICK [Concomitant]
     Active Substance: BENSERAZIDE HYDROCHLORIDE\LEVODOPA
     Indication: PRODUCT USED FOR UNKNOWN INDICATION
  7. FURIX [Concomitant]
     Active Substance: FUROSEMIDE
     Indication: PRODUCT USED FOR UNKNOWN INDICATION
  8. IKTORIVIL [Concomitant]
     Active Substance: CLONAZEPAM
     Indication: MUSCLE SPASMS
  9. ZOPICLONE [Concomitant]
     Active Substance: ZOPICLONE
     Indication: PRODUCT USED FOR UNKNOWN INDICATION
     Dosage: 1 TABLET AT NIGHT WHEN NEEDED (SOMETIMES 0.5 TABLET)
  10. TROMBYL [Concomitant]
     Active Substance: ASPIRIN
     Indication: PRODUCT USED FOR UNKNOWN INDICATION

REACTIONS (31)
  - Oral fungal infection [Recovering/Resolving]
  - Weight decreased [Recovering/Resolving]
  - Stoma site reaction [Recovering/Resolving]
  - Blood count abnormal [Not Recovered/Not Resolved]
  - Fatigue [Unknown]
  - General physical health deterioration [Recovering/Resolving]
  - Stoma site discharge [Unknown]
  - Pain [Recovered/Resolved]
  - Dysgeusia [Not Recovered/Not Resolved]
  - Fluid retention [Recovering/Resolving]
  - Hallucination [Recovered/Resolved]
  - Muscle spasms [Not Recovered/Not Resolved]
  - Balance disorder [Unknown]
  - Decreased appetite [Recovered/Resolved]
  - Hypophagia [Recovered/Resolved]
  - Gait disturbance [Unknown]
  - Asthenia [Not Recovered/Not Resolved]
  - Nightmare [Recovered/Resolved]
  - Device dislocation [Unknown]
  - Stoma site extravasation [Recovering/Resolving]
  - Hyperkinesia [Not Recovered/Not Resolved]
  - Lethargy [Not Recovered/Not Resolved]
  - Gout [Recovered/Resolved]
  - Gastric ulcer [Recovering/Resolving]
  - Gastritis [Recovering/Resolving]
  - Device issue [Unknown]
  - Drug effect decreased [Not Recovered/Not Resolved]
  - Stoma site infection [Recovered/Resolved]
  - Confusional state [Unknown]
  - Incorrect dose administered [Recovering/Resolving]
  - Musculoskeletal stiffness [Not Recovered/Not Resolved]

NARRATIVE: CASE EVENT DATE: 2018
